FAERS Safety Report 17257074 (Version 1)
Quarter: 2020Q1

REPORT INFORMATION
  Report Type: Spontaneous
  Country: US (occurrence: US)
  Receive Date: 20200109
  Receipt Date: 20200109
  Transmission Date: 20200409
  Serious: No
  Sender: FDA-Public Use
  Company Number: None

PATIENT
  Age: 45 Year
  Sex: Female
  Weight: 78.75 kg

DRUGS (10)
  1. SEROQUEL [Concomitant]
     Active Substance: QUETIAPINE FUMARATE
  2. TRAMADOL. [Concomitant]
     Active Substance: TRAMADOL
  3. GABAPENTIN. [Concomitant]
     Active Substance: GABAPENTIN
  4. TYLENOL [Concomitant]
     Active Substance: ACETAMINOPHEN
  5. TIZANDINE [Concomitant]
     Active Substance: TIZANIDINE
  6. ROBAXIN [Concomitant]
     Active Substance: METHOCARBAMOL
  7. TIZANIDINE HYDROCHLORIDE. [Suspect]
     Active Substance: TIZANIDINE HYDROCHLORIDE
     Indication: INSOMNIA
     Dosage: ?          QUANTITY:180 CAPSULE(S);?
     Route: 048
  8. MORPHINE SULFATE ER [Concomitant]
     Active Substance: MORPHINE SULFATE
  9. TIZANIDINE HYDROCHLORIDE. [Suspect]
     Active Substance: TIZANIDINE HYDROCHLORIDE
     Indication: PAIN
     Dosage: ?          QUANTITY:180 CAPSULE(S);?
     Route: 048
  10. BUPROPION HAL SR [Concomitant]

REACTIONS (4)
  - Confusional state [None]
  - Hallucination [None]
  - Drug interaction [None]
  - Seizure [None]

NARRATIVE: CASE EVENT DATE: 20191101
